FAERS Safety Report 6643849-7 (Version None)
Quarter: 2010Q1

REPORT INFORMATION
  Report Type: 
  Country: None (occurrence: None)
  Receive Date: 20100322
  Receipt Date: 20100318
  Transmission Date: 20100710
  Serious: Yes (Death, Hospitalization)
  Sender: FDA-Public Use
  Company Number: FR-JNJFOC-20100305263

PATIENT
  Sex: Male

DRUGS (3)
  1. EPITOMAX [Suspect]
     Indication: EPILEPSY
     Route: 048
  2. DEPAKENE [Concomitant]
     Indication: EPILEPSY
     Route: 065
  3. URBANYL [Concomitant]
     Indication: EPILEPSY
     Route: 065

REACTIONS (2)
  - ACUTE RESPIRATORY DISTRESS SYNDROME [None]
  - NEUTROPENIA [None]
